FAERS Safety Report 4472226-2 (Version None)
Quarter: 2004Q4

REPORT INFORMATION
  Report Type: 
  Country: None (occurrence: None)
  Receive Date: 20041012
  Receipt Date: 20041006
  Transmission Date: 20050328
  Serious: Yes (Life-Threatening, Hospitalization, Disabling)
  Sender: FDA-Public Use
  Company Number: US-MERCK-0410USA00857

PATIENT
  Age: 56 Year
  Sex: Female

DRUGS (7)
  1. CALCIUM (UNSPECIFIED) [Concomitant]
     Route: 065
  2. SOMA [Concomitant]
     Route: 065
  3. CARDIZEM [Concomitant]
     Route: 065
  4. ZESTRIL [Concomitant]
     Route: 065
  5. TOPROL-XL [Concomitant]
     Route: 065
  6. VIOXX [Suspect]
     Indication: ARTHRITIS
     Route: 048
     Dates: start: 20010101, end: 20040601
  7. ZOCOR [Concomitant]
     Route: 065

REACTIONS (2)
  - CHEST PAIN [None]
  - MYOCARDIAL INFARCTION [None]
